FAERS Safety Report 14805901 (Version 1)
Quarter: 2018Q2

REPORT INFORMATION
  Report Type: Spontaneous
  Country: BE (occurrence: BE)
  Receive Date: 20180425
  Receipt Date: 20180425
  Transmission Date: 20180711
  Serious: Yes (Death, Hospitalization)
  Sender: FDA-Public Use
  Company Number: BE-SA-2018SA116641

PATIENT
  Age: 13 Year

DRUGS (18)
  1. TEMESTA (LORAZEPAM) [Concomitant]
     Active Substance: LORAZEPAM
  2. HIBIDIL [Concomitant]
  3. NOOTROPIL [Concomitant]
     Active Substance: PIRACETAM
  4. RIVOTRIL [Concomitant]
     Active Substance: CLONAZEPAM
  5. ISO-BETADINE [Concomitant]
     Active Substance: POVIDONE-IODINE
  6. LINISOL [Concomitant]
     Active Substance: LIDOCAINE HYDROCHLORIDE
  7. MOVICOL [Concomitant]
     Active Substance: POLYETHYLENE GLYCOL 3350\POTASSIUM CHLORIDE\SODIUM BICARBONATE\SODIUM CHLORIDE
  8. LIMICAN [Concomitant]
     Active Substance: ALIZAPRIDE HYDROCHLORIDE
  9. DAFALGAN [Concomitant]
     Active Substance: ACETAMINOPHEN
  10. ULTRA K [Concomitant]
  11. LYSANXIA [Concomitant]
     Active Substance: PRAZEPAM
  12. MOZOBIL [Suspect]
     Active Substance: PLERIXAFOR
     Dosage: DOSE:20 MILLIGRAM(S)/MILLILITRE
     Route: 065
  13. EMLA [Concomitant]
     Active Substance: LIDOCAINE\PRILOCAINE
  14. POLARAMINE [Concomitant]
     Active Substance: DEXCHLORPHENIRAMINE MALEATE
  15. CHLORHEXIDINE [Concomitant]
     Active Substance: CHLORHEXIDINE
  16. NEOBACITRACINE [Concomitant]
  17. POLARAMINE [Concomitant]
     Active Substance: DEXCHLORPHENIRAMINE MALEATE
  18. LIMICAN [Concomitant]
     Active Substance: ALIZAPRIDE HYDROCHLORIDE

REACTIONS (3)
  - Death [Fatal]
  - Hospitalisation [Unknown]
  - Off label use [Unknown]

NARRATIVE: CASE EVENT DATE: 20150420
